FAERS Safety Report 5566687-5 (Version None)
Quarter: 2007Q4

REPORT INFORMATION
  Report Type: 
  Country: None (occurrence: None)
  Receive Date: 20071219
  Receipt Date: 20071214
  Transmission Date: 20080405
  Serious: Yes (Death, Life-Threatening)
  Sender: FDA-Public Use
  Company Number: IT-ELI_LILLY_AND_COMPANY-IT200712001745

PATIENT
  Sex: Male

DRUGS (6)
  1. XIGRIS [Suspect]
     Indication: SEPTIC SHOCK
     Dosage: 24 MCG/KG/HOUR
     Route: 042
     Dates: start: 20071027, end: 20071029
  2. VANCOMYCIN HYDROCHLORIDE [Suspect]
     Dosage: UNK, UNKNOWN
     Route: 065
  3. ADRENALINE [Concomitant]
     Dosage: UNK, UNKNOWN
     Route: 042
  4. NORADRENALINE [Concomitant]
     Dosage: UNK, UNKNOWN
     Route: 042
  5. LEVOFLOXACIN [Concomitant]
     Dosage: UNK, UNKNOWN
     Route: 065
  6. PIPERACILLIN W/TAZOBACTAM [Concomitant]
     Dosage: UNK, UNKNOWN
     Route: 042

REACTIONS (2)
  - CEREBRAL HAEMORRHAGE [None]
  - COMA [None]
